FAERS Safety Report 15945975 (Version 2)
Quarter: 2019Q1

REPORT INFORMATION
  Report Type: Report from Study
  Country: DE (occurrence: DE)
  Receive Date: 20190211
  Receipt Date: 20190212
  Transmission Date: 20190417
  Serious: No
  Sender: FDA-Public Use
  Company Number: DE-ROCHE-2257684

PATIENT
  Age: 53 Year
  Sex: Female

DRUGS (1)
  1. OCREVUS [Suspect]
     Active Substance: OCRELIZUMAB
     Indication: PRIMARY PROGRESSIVE MULTIPLE SCLEROSIS
     Route: 042
     Dates: start: 201808

REACTIONS (4)
  - Fatigue [Recovered/Resolved]
  - Nasopharyngitis [Unknown]
  - Musculoskeletal disorder [Not Recovered/Not Resolved]
  - Atonic urinary bladder [Not Recovered/Not Resolved]

NARRATIVE: CASE EVENT DATE: 201812
